FAERS Safety Report 17264135 (Version 3)
Quarter: 2020Q1

REPORT INFORMATION
  Report Type: Spontaneous
  Country: US (occurrence: US)
  Receive Date: 20200113
  Receipt Date: 20200123
  Transmission Date: 20200409
  Serious: Yes (Hospitalization, Disabling)
  Sender: FDA-Public Use
  Company Number: US-CELGENEUS-USA-20200103180

PATIENT
  Sex: Female
  Weight: 77.18 kg

DRUGS (8)
  1. POMALYST [Suspect]
     Active Substance: POMALIDOMIDE
     Dosage: 2 MILLIGRAM
     Route: 048
     Dates: start: 201912
  2. ZARXIO [Concomitant]
     Active Substance: FILGRASTIM-SNDZ
     Indication: COLONY STIMULATING FACTOR THERAPY
     Route: 065
     Dates: start: 20200107, end: 20200111
  3. POMALYST [Suspect]
     Active Substance: POMALIDOMIDE
     Dosage: 2 MILLIGRAM
     Route: 048
  4. DEXAMETHASONE. [Concomitant]
     Active Substance: DEXAMETHASONE
     Indication: PLASMA CELL MYELOMA
     Route: 065
     Dates: start: 201907
  5. MEROPENEM. [Concomitant]
     Active Substance: MEROPENEM
     Indication: INFECTION PROPHYLAXIS
     Dosage: 1000 MILLIGRAM
     Route: 065
  6. POMALYST [Suspect]
     Active Substance: POMALIDOMIDE
     Indication: PLASMA CELL MYELOMA
     Dosage: 4 MILLIGRAM
     Route: 048
     Dates: start: 201907
  7. AZTREONAM. [Concomitant]
     Active Substance: AZTREONAM
     Indication: INFECTION PROPHYLAXIS
     Route: 065
  8. VELCADE [Concomitant]
     Active Substance: BORTEZOMIB
     Indication: PLASMA CELL MYELOMA
     Route: 065
     Dates: start: 201907

REACTIONS (2)
  - Infection [Recovering/Resolving]
  - Acute kidney injury [Recovering/Resolving]
